FAERS Safety Report 4408075-0 (Version None)
Quarter: 2004Q3

REPORT INFORMATION
  Report Type: 
  Country: None (occurrence: None)
  Receive Date: 20040721
  Receipt Date: 20040715
  Transmission Date: 20050211
  Serious: Yes (Life-Threatening)
  Sender: FDA-Public Use
  Company Number: 03P-056-0225297-00

PATIENT

DRUGS (7)
  1. DEPAKINE TABLETS (SODIUM VALPROATE) (SODIUM VALPROATE) (SODIUM VALPROA [Suspect]
     Dosage: PER ORAL
     Route: 048
  2. KALETRA [Suspect]
     Dosage: 499.8 MG, 2 IN 1 D; PER ORAL
     Route: 048
  3. TENOFOVIR [Suspect]
     Dosage: PER ORAL
     Route: 048
  4. BACTRIM [Suspect]
     Dosage: 480 MG, 1 IN 1 D; PER ORAL
     Route: 048
  5. DIDANOSINE [Suspect]
     Dosage: PER ORAL
     Route: 048
     Dates: end: 20030101
  6. FLUOXETINE HCL [Concomitant]
  7. MACROGOL [Concomitant]

REACTIONS (4)
  - ABDOMINAL PAIN UPPER [None]
  - LACTIC ACIDOSIS [None]
  - PANCREATITIS ACUTE [None]
  - WEIGHT DECREASED [None]
